FAERS Safety Report 8770486 (Version 1)
Quarter: 2012Q4

REPORT INFORMATION
  Report Type: 
  Country: CL (occurrence: CL)
  Receive Date: 20120906
  Receipt Date: 20120906
  Transmission Date: 20130627
  Serious: Yes (Other)
  Sender: FDA-Public Use
  Company Number: CL-PFIZER INC-2012220075

PATIENT
  Age: 61 Year
  Sex: Female

DRUGS (7)
  1. CHAMPIX [Suspect]
     Indication: SMOKING CESSATION THERAPY
     Dosage: 0.5 mg, 1x/day
     Dates: start: 20120819, end: 20120902
  2. IMIPRAMINE [Concomitant]
     Dosage: UNK
  3. CLONAZEPAM [Concomitant]
     Dosage: UNK
  4. SALBUTAMOL [Concomitant]
     Dosage: UNK
     Route: 055
  5. IPRATROPIUM BROMIDE [Concomitant]
     Dosage: UNK
  6. AEROVIAL [Concomitant]
     Dosage: UNK
  7. SALMETEROL [Concomitant]
     Dosage: UNK

REACTIONS (5)
  - Incoherent [Not Recovered/Not Resolved]
  - Hypoaesthesia [Not Recovered/Not Resolved]
  - Nausea [Not Recovered/Not Resolved]
  - Dizziness [Not Recovered/Not Resolved]
  - Headache [Not Recovered/Not Resolved]
